FAERS Safety Report 4346881-1 (Version None)
Quarter: 2004Q1

REPORT INFORMATION
  Report Type: 
  Country: None (occurrence: None)
  Receive Date: 20040329
  Receipt Date: 20031209
  Transmission Date: 20041129
  Serious: No
  Sender: FDA-Public Use
  Company Number: USA031254355

PATIENT
  Age: 9 Year
  Sex: Male

DRUGS (3)
  1. STRATTERA [Suspect]
  2. ADDERALL 10 [Concomitant]
  3. LEXAPRO [Concomitant]

REACTIONS (2)
  - TIC [None]
  - WEIGHT DECREASED [None]
